FAERS Safety Report 8583711-6 (Version None)
Quarter: 2012Q3

REPORT INFORMATION
  Report Type: 
  Country: None (occurrence: None)
  Receive Date: 20120809
  Receipt Date: 20120712
  Transmission Date: 20120928
  Serious: Yes (Other)
  Sender: FDA-Public Use
  Company Number: JP-009507513-2012SP036766

PATIENT

DRUGS (19)
  1. URSO 250 [Concomitant]
     Indication: HEPATITIS C
     Dosage: FORMULATION: POR
     Route: 048
     Dates: end: 20120430
  2. GLYCYRON [Concomitant]
     Indication: HEPATITIS C
     Dosage: 6 DF, QD
     Route: 048
     Dates: end: 20120430
  3. LOXONIN [Concomitant]
     Indication: PRODUCT USED FOR UNKNOWN INDICATION
     Dosage: 60 MG, PRN
     Route: 048
  4. REBETOL [Suspect]
     Indication: HEPATITIS C
     Dosage: 800 MG, QD
     Route: 048
     Dates: start: 20120417, end: 20120521
  5. TELAVIC [Suspect]
     Route: 048
     Dates: start: 20120529, end: 20120619
  6. EPINASTINE HYDROCHLORIDE [Concomitant]
     Indication: URTICARIA CHRONIC
     Dosage: FORMULATION: POR
     Route: 048
     Dates: end: 20120430
  7. PRIMPERAN TAB [Concomitant]
     Indication: PRODUCT USED FOR UNKNOWN INDICATION
     Dosage: 10 MG, PRN
     Route: 048
  8. ALLEGRA [Concomitant]
     Indication: PRODUCT USED FOR UNKNOWN INDICATION
     Dosage: 200 MG, PRN
     Route: 048
     Dates: start: 20120612
  9. EPINASTINE HYDROCHLORIDE [Concomitant]
     Route: 048
  10. ADALAT CC [Concomitant]
     Indication: HYPERTENSION
     Dosage: FORMULATION: POR
     Route: 048
     Dates: end: 20120430
  11. REBETOL [Suspect]
     Route: 048
  12. ANTIVIRAL (UNSPECIFIED) [Suspect]
     Dosage: 1500 MG, QD
     Route: 048
     Dates: start: 20120529, end: 20120619
  13. ACETAMINOPHEN [Concomitant]
     Indication: PRODUCT USED FOR UNKNOWN INDICATION
     Dosage: 400 MG, PRN
     Route: 048
     Dates: start: 20120418
  14. REBETOL [Suspect]
     Dosage: 600 MG, QD
     Route: 048
     Dates: start: 20120522
  15. ANTIVIRAL (UNSPECIFIED) [Suspect]
     Indication: HEPATITIS C
     Dosage: 2250 MG, QD
     Route: 048
     Dates: start: 20120417, end: 20120528
  16. TELAVIC [Suspect]
     Indication: HEPATITIS C
     Route: 048
     Dates: start: 20120417, end: 20120528
  17. ALLOPURINOL [Concomitant]
     Indication: BLOOD URIC ACID INCREASED
     Dosage: 200 MG, QD
     Route: 048
     Dates: end: 20120529
  18. ADALAT CC [Concomitant]
     Route: 048
  19. PEG-INTRON [Suspect]
     Indication: HEPATITIS C
     Dosage: 1.5MCG/KG/WEEK
     Route: 058
     Dates: start: 20120417

REACTIONS (2)
  - RASH [None]
  - DRUG ERUPTION [None]
